FAERS Safety Report 7511395-4 (Version None)
Quarter: 2011Q2

REPORT INFORMATION
  Report Type: 
  Country: None (occurrence: None)
  Receive Date: 20110531
  Receipt Date: 20110119
  Transmission Date: 20111010
  Serious: Yes (Life-Threatening, Other)
  Sender: FDA-Public Use
  Company Number: US-BAYER-200939457NA

PATIENT
  Age: 39 Year
  Sex: Female
  Weight: 86.364 kg

DRUGS (11)
  1. YAZ [Suspect]
     Indication: PREMENSTRUAL SYNDROME
     Dosage: 1 DF
     Route: 048
     Dates: start: 20070801, end: 20071101
  2. COLACE [Concomitant]
  3. IBUPROFEN [Concomitant]
     Dosage: 800 MG, UNK
  4. PRISTIQ [Concomitant]
  5. ZOLOFT [Concomitant]
     Dosage: 50 MG, UNK
  6. ETHINYL ESTRADIOL AND NORETHINDRONE [Concomitant]
     Dosage: UNK
     Dates: start: 20070620, end: 20070801
  7. KLONOPIN [Concomitant]
     Dosage: 0.5 UNK, UNK
  8. DETROL LA [Concomitant]
     Dosage: 4 MG, UNK
  9. LEXAPRO [Concomitant]
     Dosage: 20 MG, UNK
  10. TOPAMAX [Concomitant]
     Dosage: 25 MG, UNK
  11. ASPIRIN [Concomitant]

REACTIONS (5)
  - DYSPNOEA [None]
  - OEDEMA PERIPHERAL [None]
  - PULMONARY EMBOLISM [None]
  - DEEP VEIN THROMBOSIS [None]
  - PAIN IN EXTREMITY [None]
